FAERS Safety Report 22132066 (Version 1)
Quarter: 2023Q1

REPORT INFORMATION
  Report Type: Spontaneous
  Country: US (occurrence: US)
  Receive Date: 20230323
  Receipt Date: 20230323
  Transmission Date: 20230418
  Serious: Yes (Death, Hospitalization, Other)
  Sender: FDA-Public Use
  Company Number: US-AMGEN-USASP2023046884

PATIENT
  Age: 50 Year
  Sex: Male

DRUGS (33)
  1. XGEVA [Suspect]
     Active Substance: DENOSUMAB
     Indication: Metastases to lung
     Dosage: UNK
     Route: 065
  2. XGEVA [Suspect]
     Active Substance: DENOSUMAB
     Indication: Metastases to bone
  3. XGEVA [Suspect]
     Active Substance: DENOSUMAB
     Indication: Adenocarcinoma pancreas
  4. GEMCITABINE [Concomitant]
     Active Substance: GEMCITABINE
     Indication: Adenocarcinoma
     Dosage: UNK
     Route: 065
  5. GEMCITABINE [Concomitant]
     Active Substance: GEMCITABINE
     Indication: Pancreatic carcinoma
  6. FLUOROURACIL\IRINOTECAN\LEUCOVORIN\OXALIPLATIN [Concomitant]
     Active Substance: FLUOROURACIL\IRINOTECAN\LEUCOVORIN\OXALIPLATIN
     Indication: Adenocarcinoma
     Dosage: UNK
     Route: 065
  7. BEVACIZUMAB [Concomitant]
     Active Substance: BEVACIZUMAB
     Indication: Adenocarcinoma
     Dosage: UNK
     Route: 065
  8. CAPECITABINE [Concomitant]
     Active Substance: CAPECITABINE
     Indication: Adenocarcinoma
     Dosage: UNK
     Route: 065
  9. CAPECITABINE [Concomitant]
     Active Substance: CAPECITABINE
     Indication: Pancreatic carcinoma
  10. PACLITAXEL [Concomitant]
     Active Substance: PACLITAXEL
     Indication: Pancreatic carcinoma
     Dosage: UNK
  11. PACLITAXEL [Concomitant]
     Active Substance: PACLITAXEL
     Indication: Adenocarcinoma
  12. PARICALCITOL [Concomitant]
     Active Substance: PARICALCITOL
     Indication: Metastases to lung
     Dosage: UNK
     Route: 065
     Dates: start: 201506
  13. CYTOXAN [Concomitant]
     Active Substance: CYCLOPHOSPHAMIDE
     Indication: Metastases to lung
     Dosage: UNK
     Route: 065
     Dates: start: 201510
  14. PEMBROLIZUMAB [Concomitant]
     Active Substance: PEMBROLIZUMAB
     Indication: Metastases to lung
     Dosage: UNK
     Route: 065
     Dates: start: 201510
  15. DOCETAXEL [Concomitant]
     Active Substance: DOCETAXEL
     Indication: Metastases to lung
     Dosage: UNK
     Route: 065
     Dates: start: 20151214
  16. CISPLATIN [Concomitant]
     Active Substance: CISPLATIN
     Indication: Metastases to lung
     Dosage: UNK
     Route: 065
     Dates: start: 20151214
  17. ETOPOSIDE [Concomitant]
     Active Substance: ETOPOSIDE
     Indication: Metastases to lung
     Dosage: UNK
     Route: 065
     Dates: start: 20160106
  18. CARBOPLATIN [Concomitant]
     Active Substance: CARBOPLATIN
     Indication: Metastases to lung
     Dosage: UNK
     Route: 065
     Dates: start: 20160106
  19. ABRAXANE [Concomitant]
     Active Substance: PACLITAXEL
     Indication: Adenocarcinoma
     Dosage: UNK
     Route: 065
  20. TRAMETINIB [Concomitant]
     Active Substance: TRAMETINIB
     Indication: Adenocarcinoma
     Dosage: 30 MILLIGRAM/KG
     Route: 065
  21. DISULFIRAM [Concomitant]
     Active Substance: DISULFIRAM
     Indication: Adenocarcinoma
     Dosage: 80 MILLIGRAM/KG
     Route: 065
  22. SELUMETINIB [Concomitant]
     Active Substance: SELUMETINIB
     Indication: Adenocarcinoma
     Dosage: 30 MILLIGRAM/M^2
     Route: 042
  23. CYCLOPHOSPHAMIDE [Concomitant]
     Active Substance: CYCLOPHOSPHAMIDE
     Indication: Adenocarcinoma
     Dosage: 300 MILLIGRAM/M^2
     Route: 042
  24. ALDESLEUKIN [Concomitant]
     Active Substance: ALDESLEUKIN
     Indication: Adenocarcinoma
     Dosage: 10 UNIT/ML
     Route: 058
  25. ALDESLEUKIN [Concomitant]
     Active Substance: ALDESLEUKIN
     Dosage: 250000 UNIT/M^2 (Q12H)
     Route: 058
  26. DENENICOKIN [Concomitant]
     Active Substance: DENENICOKIN
     Indication: Adenocarcinoma
     Dosage: 30 NANOGRAM/ML
     Route: 065
  27. AFATINIB [Concomitant]
     Active Substance: AFATINIB
     Indication: Adenocarcinoma
     Dosage: UNK
     Route: 065
  28. OLAPARIB [Concomitant]
     Active Substance: OLAPARIB
     Indication: Adenocarcinoma
     Dosage: UNK
     Route: 065
  29. BORTEZOMIB [Concomitant]
     Active Substance: BORTEZOMIB
     Indication: Adenocarcinoma
     Dosage: UNK
     Route: 065
  30. EVEROLIMUS [Concomitant]
     Active Substance: EVEROLIMUS
     Indication: Adenocarcinoma
     Dosage: UNK
     Route: 065
  31. INVESTIGATIONAL PRODUCT [Concomitant]
     Active Substance: INVESTIGATIONAL PRODUCT
     Indication: Adenocarcinoma
     Dosage: UNK
     Route: 065
  32. PACLITAXEL [Concomitant]
     Active Substance: PACLITAXEL
     Indication: Adenocarcinoma
     Dosage: UNK
     Route: 065
  33. FLUOROURACIL [Concomitant]
     Active Substance: FLUOROURACIL
     Indication: Adenocarcinoma
     Dosage: UNK
     Route: 065

REACTIONS (9)
  - Death [Fatal]
  - Pancreatic carcinoma metastatic [Unknown]
  - Tracheostomy infection [Unknown]
  - Neuroendocrine tumour of the lung [Unknown]
  - Pneumonia [Unknown]
  - Fungal infection [Unknown]
  - Deep vein thrombosis [Unknown]
  - Pulmonary embolism [Unknown]
  - General physical health deterioration [Unknown]

NARRATIVE: CASE EVENT DATE: 20150201
